FAERS Safety Report 9973178 (Version 2)
Quarter: 2014Q1

REPORT INFORMATION
  Report Type: Spontaneous
  Country: US (occurrence: US)
  Receive Date: 20140306
  Receipt Date: 20140306
  Transmission Date: 20141002
  Serious: No
  Sender: FDA-Public Use
  Company Number: US-ABBVIE-13P-163-1125789-00

PATIENT
  Age: 29 Year
  Sex: Female
  Weight: 63.56 kg

DRUGS (7)
  1. HUMIRA [Suspect]
     Indication: CROHN^S DISEASE
     Dates: start: 201307, end: 201307
  2. HUMIRA [Suspect]
     Dates: start: 201308, end: 201308
  3. HUMIRA [Suspect]
     Dates: start: 201309
  4. AZATHIOPRINE [Concomitant]
     Indication: CROHN^S DISEASE
  5. PREDNISONE [Concomitant]
     Indication: CROHN^S DISEASE
  6. PENTASA [Concomitant]
     Indication: CROHN^S DISEASE
  7. IRON [Concomitant]
     Indication: MINERAL SUPPLEMENTATION

REACTIONS (3)
  - Device malfunction [Recovered/Resolved]
  - Injection site pain [Recovered/Resolved]
  - Injection site pain [Not Recovered/Not Resolved]
